FAERS Safety Report 4937142-8 (Version None)
Quarter: 2006Q1

REPORT INFORMATION
  Report Type: 
  Country: None (occurrence: None)
  Receive Date: 20060302
  Receipt Date: 20060221
  Transmission Date: 20060701
  Serious: Yes (Life-Threatening)
  Sender: FDA-Public Use
  Company Number: GXKR2006JP01109

PATIENT
  Age: 68 Year
  Sex: Female

DRUGS (2)
  1. CARBOPLATIN (NGX) (CARBOPLATIN) [Suspect]
     Indication: METASTASES TO BONE
     Dates: start: 20020620
  2. PACLITAXEL (NGX) (PACLITAXEL) [Suspect]
     Indication: METASTASES TO BONE
     Dosage: 210 MG/M2,
     Dates: start: 20050620

REACTIONS (6)
  - ABDOMINAL PAIN [None]
  - COLON INJURY [None]
  - DIARRHOEA HAEMORRHAGIC [None]
  - FEBRILE NEUTROPENIA [None]
  - NEUTROPENIC COLITIS [None]
  - OEDEMA [None]
